FAERS Safety Report 10081419 (Version 1)
Quarter: 2014Q2

REPORT INFORMATION
  Report Type: Spontaneous
  Country: DE (occurrence: FR)
  Receive Date: 20140416
  Receipt Date: 20140416
  Transmission Date: 20141212
  Serious: Yes (Death, Hospitalization)
  Sender: FDA-Public Use
  Company Number: US-MERZ PHARMACEUTICALS, LLC DRUG SAFETY-14MRZ-00164

PATIENT
  Age: 54 Year
  Sex: Male

DRUGS (1)
  1. AETHOXYSCLEROL TAMPONNE 2% [Suspect]
     Indication: SCLEROTHERAPY
     Dosage: ONE VIAL
     Route: 042
     Dates: start: 20140327, end: 20140327

REACTIONS (4)
  - Cardiac arrest [None]
  - Syncope [None]
  - Ventricular tachycardia [None]
  - Multi-organ failure [None]
